FAERS Safety Report 25521358 (Version 2)
Quarter: 2025Q3

REPORT INFORMATION
  Report Type: Other
  Country: US (occurrence: US)
  Receive Date: 20250705
  Receipt Date: 20250920
  Transmission Date: 20251020
  Serious: No
  Sender: TRAVERE THERAPEUTICS
  Company Number: US-TRAVERE-2025TVT00916

PATIENT
  Sex: Female

DRUGS (2)
  1. FILSPARI [Suspect]
     Active Substance: SPARSENTAN
     Indication: IgA nephropathy
     Route: 048
     Dates: start: 20250515, end: 20250610
  2. TARPEYO [Concomitant]
     Active Substance: BUDESONIDE

REACTIONS (6)
  - Dizziness [None]
  - Nausea [Unknown]
  - Hypoaesthesia [Unknown]
  - Paraesthesia [None]
  - Gait disturbance [Unknown]
  - Product administration error [Unknown]
